FAERS Safety Report 8719606 (Version 2)
Quarter: 2013Q2

REPORT INFORMATION
  Report Type: Spontaneous
  Country: PE (occurrence: PE)
  Receive Date: 20120813
  Receipt Date: 20130426
  Transmission Date: 20140414
  Serious: Yes (Death, Other)
  Sender: FDA-Public Use
  Company Number: PE-JNJFOC-20120803498

PATIENT
  Sex: Male
  Weight: 68 kg

DRUGS (3)
  1. REMICADE [Suspect]
     Indication: PRODUCT USED FOR UNKNOWN INDICATION
     Route: 042
  2. METHOTREXATE [Concomitant]
     Route: 065
  3. VITAMIN [Concomitant]
     Route: 065

REACTIONS (4)
  - Pancreatic carcinoma [Fatal]
  - Weight decreased [Not Recovered/Not Resolved]
  - Rash erythematous [Recovering/Resolving]
  - Skin lesion [Recovering/Resolving]
